FAERS Safety Report 9239781 (Version 2)
Quarter: 2013Q2

REPORT INFORMATION
  Report Type: Spontaneous
  Country: JP (occurrence: JP)
  Receive Date: 20130418
  Receipt Date: 20130426
  Transmission Date: 20140414
  Serious: Yes (Hospitalization)
  Sender: FDA-Public Use
  Company Number: JP-MERCK-1304JPN008039

PATIENT
  Age: 85 Year
  Sex: Female

DRUGS (11)
  1. GLACTIV [Suspect]
     Indication: TYPE 2 DIABETES MELLITUS
     Dosage: 50 MG, QD
     Route: 048
     Dates: start: 20120315, end: 20130304
  2. WARFARIN POTASSIUM [Concomitant]
     Dosage: UNK
     Dates: start: 20110620
  3. ALDACTONE A [Concomitant]
     Dosage: UNK
     Dates: start: 20110620
  4. ARTIST [Concomitant]
     Dosage: UNK
     Dates: start: 20110620
  5. DIGOXIN [Concomitant]
     Dosage: UNK
     Dates: start: 20110620
  6. MAGLAX [Concomitant]
     Dosage: UNK
  7. GLIMICRON [Concomitant]
     Dosage: 20 MG, QD
     Dates: start: 20111208, end: 20111221
  8. GLIMICRON [Concomitant]
     Dosage: 10 MG, QD
     Dates: start: 20111222, end: 20120329
  9. HOKUNALIN [Concomitant]
     Dosage: UNK
     Dates: start: 20110620
  10. LASIX (FUROSEMIDE) [Concomitant]
     Dosage: UNK
     Dates: start: 20110620
  11. ITOROL [Concomitant]
     Dosage: UNK
     Dates: start: 20110620

REACTIONS (1)
  - Hypoglycaemia [Recovered/Resolved]
